FAERS Safety Report 8499454-3 (Version None)
Quarter: 2012Q3

REPORT INFORMATION
  Report Type: 
  Country: None (occurrence: None)
  Receive Date: 20120710
  Receipt Date: 20120628
  Transmission Date: 20120928
  Serious: Yes (Other)
  Sender: FDA-Public Use
  Company Number: US-JNJFOC-20120703484

PATIENT
  Age: 52 Year
  Sex: Female
  Weight: 78 kg

DRUGS (6)
  1. CELEBREX [Suspect]
     Indication: HEADACHE
     Route: 048
     Dates: start: 20120601, end: 20120601
  2. IBUPROFEN [Suspect]
     Indication: HEADACHE
     Route: 048
     Dates: start: 20120601, end: 20120601
  3. IBUPROFEN [Suspect]
     Indication: BACK PAIN
     Route: 048
     Dates: start: 20120601, end: 20120601
  4. CELEBREX [Suspect]
     Indication: MUSCLE SPASMS
     Route: 048
     Dates: start: 20120601, end: 20120601
  5. CELEBREX [Suspect]
     Indication: BACK PAIN
     Route: 048
     Dates: start: 20120601, end: 20120601
  6. ALBUTEROL [Concomitant]
     Indication: ASTHMA
     Dosage: 2 PUFFS, AS NEEDED
     Route: 065

REACTIONS (4)
  - DRUG INEFFECTIVE [None]
  - OVERDOSE [None]
  - BRONCHITIS [None]
  - GASTROOESOPHAGEAL REFLUX DISEASE [None]
